FAERS Safety Report 17353706 (Version 3)
Quarter: 2020Q2

REPORT INFORMATION
  Report Type: Spontaneous
  Country: US (occurrence: US)
  Receive Date: 20200131
  Receipt Date: 20200406
  Transmission Date: 20200713
  Serious: Yes (Other)
  Sender: FDA-Public Use
  Company Number: US-GILEAD-2020-0448974

PATIENT
  Age: 59 Year
  Sex: Male

DRUGS (17)
  1. ALPRAZOLAM. [Concomitant]
     Active Substance: ALPRAZOLAM
  2. LIDOCAINE. [Concomitant]
     Active Substance: LIDOCAINE
  3. FLUCONAZOLE. [Concomitant]
     Active Substance: FLUCONAZOLE
  4. TRUVADA [Suspect]
     Active Substance: EMTRICITABINE\TENOFOVIR DISOPROXIL FUMARATE
     Indication: HIV INFECTION
     Dosage: UNK
     Route: 048
     Dates: start: 200803, end: 201612
  5. NORVIR [Concomitant]
     Active Substance: RITONAVIR
  6. HYDROCODONE [Concomitant]
     Active Substance: HYDROCODONE
  7. PRAVASTATIN SODIUM. [Concomitant]
     Active Substance: PRAVASTATIN SODIUM
  8. ROCALTROL [Concomitant]
     Active Substance: CALCITRIOL
  9. TRIAMCINOLONE ACETONIDE. [Concomitant]
     Active Substance: TRIAMCINOLONE ACETONIDE
  10. CITALOPRAM HYDROBROMIDE. [Concomitant]
     Active Substance: CITALOPRAM HYDROBROMIDE
  11. ACYCLOVIR [ACICLOVIR] [Concomitant]
     Active Substance: ACYCLOVIR
  12. AZITHROMYCIN ANHYDROUS. [Concomitant]
     Active Substance: AZITHROMYCIN ANHYDROUS
  13. REYATAZ [Concomitant]
     Active Substance: ATAZANAVIR SULFATE
  14. GAVILYTE - C [Concomitant]
     Active Substance: POLYETHYLENE GLYCOL 3350\POTASSIUM CHLORIDE\SODIUM BICARBONATE\SODIUM CHLORIDE\SODIUM SULFATE ANHYDROUS
  15. LEVITRA [Concomitant]
     Active Substance: VARDENAFIL HYDROCHLORIDE
  16. MEPRON [METAMIZOLE SODIUM] [Concomitant]
     Active Substance: METAMIZOLE SODIUM
  17. CALCITRIOL. [Concomitant]
     Active Substance: CALCITRIOL

REACTIONS (14)
  - Chronic kidney disease [Not Recovered/Not Resolved]
  - Anxiety [Unknown]
  - Acute kidney injury [Recovered/Resolved]
  - Economic problem [Unknown]
  - Emotional distress [Unknown]
  - Lumbar vertebral fracture [Not Recovered/Not Resolved]
  - Osteonecrosis [Unknown]
  - Osteopenia [Not Recovered/Not Resolved]
  - Anhedonia [Unknown]
  - Acute kidney injury [Recovered/Resolved]
  - Pain [Unknown]
  - Chronic kidney disease [Recovered/Resolved]
  - Bone density decreased [Unknown]
  - Bone loss [Unknown]

NARRATIVE: CASE EVENT DATE: 20080520
